FAERS Safety Report 19291912 (Version 1)
Quarter: 2021Q2

REPORT INFORMATION
  Report Type: Spontaneous
  Country: US (occurrence: US)
  Receive Date: 20210524
  Receipt Date: 20210524
  Transmission Date: 20210717
  Serious: No
  Sender: FDA-Public Use
  Company Number: US-ELI_LILLY_AND_COMPANY-US202105006708

PATIENT
  Age: 85 Year
  Sex: Female

DRUGS (2)
  1. RETEVMO [Suspect]
     Active Substance: SELPERCATINIB
     Dosage: 120 MG, BID
     Route: 048
  2. RETEVMO [Suspect]
     Active Substance: SELPERCATINIB
     Indication: LUNG ADENOCARCINOMA STAGE IV
     Dosage: 120 MG, BID
     Route: 048
     Dates: start: 202007

REACTIONS (3)
  - Weight increased [Recovering/Resolving]
  - Vitamin B12 decreased [Not Recovered/Not Resolved]
  - Weight decreased [Recovering/Resolving]

NARRATIVE: CASE EVENT DATE: 202007
